FAERS Safety Report 6955746-8 (Version None)
Quarter: 2010Q3

REPORT INFORMATION
  Report Type: 
  Country: None (occurrence: None)
  Receive Date: 20100830
  Receipt Date: 20100820
  Transmission Date: 20110219
  Serious: Yes (Life-Threatening, Hospitalization, Disabling)
  Sender: FDA-Public Use
  Company Number: CZ-ROCHE-720079

PATIENT
  Age: 40 Year
  Sex: Female

DRUGS (5)
  1. XELODA [Suspect]
     Indication: PRODUCT USED FOR UNKNOWN INDICATION
     Dosage: 2000 MG IN MORNING 1500 MG IN EVENING
     Route: 048
     Dates: start: 20100708, end: 20100721
  2. XELODA [Suspect]
     Dosage: 2000 MG IN MORNING 1500 MG IN EVENING
     Route: 048
     Dates: start: 20100802, end: 20100809
  3. AVASTIN [Concomitant]
     Dates: start: 20100708, end: 20100809
  4. OXALIPLATIN [Concomitant]
     Dates: start: 20100708, end: 20100721
  5. OXALIPLATIN [Concomitant]
     Dates: start: 20100802, end: 20100809

REACTIONS (4)
  - BRAIN INJURY [None]
  - LOCKED-IN SYNDROME [None]
  - LOSS OF CONSCIOUSNESS [None]
  - VENTRICULAR FIBRILLATION [None]
